FAERS Safety Report 12627164 (Version 2)
Quarter: 2016Q3

REPORT INFORMATION
  Report Type: Spontaneous
  Country: ES (occurrence: ES)
  Receive Date: 20160805
  Receipt Date: 20160824
  Transmission Date: 20161109
  Serious: Yes (Hospitalization)
  Sender: FDA-Public Use
  Company Number: ES-ABBVIE-16P-144-1694734-00

PATIENT
  Age: 68 Year
  Sex: Female
  Weight: 82 kg

DRUGS (1)
  1. TEVETEN [Suspect]
     Active Substance: EPROSARTAN MESYLATE
     Indication: PRODUCT USED FOR UNKNOWN INDICATION
     Dosage: FORM STRENGTH:600 MG/12.5 MG
     Route: 048
     Dates: start: 20111223, end: 20160308

REACTIONS (1)
  - Hypokalaemia [Recovered/Resolved]

NARRATIVE: CASE EVENT DATE: 20160302
